FAERS Safety Report 16383463 (Version 1)
Quarter: 2019Q2

REPORT INFORMATION
  Report Type: Spontaneous
  Country: US (occurrence: US)
  Receive Date: 20190603
  Receipt Date: 20190603
  Transmission Date: 20190711
  Serious: No
  Sender: FDA-Public Use
  Company Number: US-PFIZER INC-2017231812

PATIENT
  Age: 33 Year
  Sex: Female

DRUGS (1)
  1. INOTUZUMAB OZOGAMICIN [Suspect]
     Active Substance: INOTUZUMAB OZOGAMICIN
     Dosage: UNK
     Dates: start: 201404, end: 201404

REACTIONS (2)
  - Neoplasm recurrence [Unknown]
  - Menopause [Unknown]

NARRATIVE: CASE EVENT DATE: 201606
